FAERS Safety Report 6384250-3 (Version None)
Quarter: 2009Q4

REPORT INFORMATION
  Report Type: 
  Country: None (occurrence: None)
  Receive Date: 20091001
  Receipt Date: 20090922
  Transmission Date: 20100525
  Serious: Yes (Other)
  Sender: FDA-Public Use
  Company Number: US-PFIZER INC-2009276542

PATIENT
  Sex: Female

DRUGS (2)
  1. AZITHROMYCIN [Suspect]
     Dosage: 250 MG, 1X/DAY
     Route: 048
  2. AZITHROMYCIN [Suspect]
     Dosage: 250 MG, 1X/DAY
     Route: 048

REACTIONS (3)
  - RENAL FAILURE [None]
  - RETINAL DETACHMENT [None]
  - VAGINAL INFECTION [None]
